FAERS Safety Report 5797083-3 (Version None)
Quarter: 2008Q3

REPORT INFORMATION
  Report Type: 
  Country: None (occurrence: None)
  Receive Date: 20080701
  Receipt Date: 20080625
  Transmission Date: 20090109
  Serious: Yes (Hospitalization)
  Sender: FDA-Public Use
  Company Number: BR-ASTRAZENECA-2008UW11962

PATIENT
  Age: 65 Year
  Sex: Male
  Weight: 76 kg

DRUGS (3)
  1. ATACAND [Suspect]
     Indication: HYPERTENSION
     Route: 048
     Dates: end: 20080601
  2. ATACAND HCT [Suspect]
     Indication: HYPERTENSION
     Route: 048
     Dates: start: 20080604
  3. PRESSAT [Concomitant]
     Indication: HYPERTENSION
     Route: 048
     Dates: start: 20080603

REACTIONS (4)
  - INNER EAR DISORDER [None]
  - MYOCARDIAL INFARCTION [None]
  - RHINITIS ALLERGIC [None]
  - SYNCOPE [None]
